FAERS Safety Report 4563948-3 (Version None)
Quarter: 2005Q1

REPORT INFORMATION
  Report Type: 
  Country: None (occurrence: None)
  Receive Date: 20050121
  Receipt Date: 20050110
  Transmission Date: 20050727
  Serious: Yes (Hospitalization, Other)
  Sender: FDA-Public Use
  Company Number: 2004053276

PATIENT
  Age: 41 Year
  Sex: Male
  Weight: 68 kg

DRUGS (7)
  1. LIPITOR [Suspect]
     Indication: ILL-DEFINED DISORDER
     Dosage: 10 MG (10 MG, 1 IN 1 D), ORAL
     Route: 048
  2. LORAZEPAM [Concomitant]
  3. DIPHENHYDRAMINE HCL [Concomitant]
  4. ZUCLOPENTHIXOL ACETATE (ZUCLOPENTHIXOL ACETATE) [Concomitant]
  5. BENZTROPINE MESYLATE [Concomitant]
  6. LOXAPINE [Concomitant]
  7. QUETIAPINE FUMARATE (QUETIAPINE FUMARATE) [Concomitant]

REACTIONS (4)
  - BLOOD CREATININE INCREASED [None]
  - CONFUSIONAL STATE [None]
  - METABOLIC DISORDER [None]
  - RHABDOMYOLYSIS [None]
